FAERS Safety Report 4712757-0 (Version None)
Quarter: 2005Q3

REPORT INFORMATION
  Report Type: 
  Country: None (occurrence: None)
  Receive Date: 20050701
  Receipt Date: 20050223
  Transmission Date: 20060218
  Serious: Yes (Other)
  Sender: FDA-Public Use
  Company Number: 2005037043

PATIENT
  Age: 8 Year
  Sex: Male

DRUGS (2)
  1. ZOLOFT [Suspect]
     Indication: ANXIETY
     Dosage: 25 MG (25 MG, 1 IN 1 D), ORAL
     Route: 048
  2. ZOLOFT [Suspect]
     Indication: PANIC ATTACK
     Dosage: 25 MG (25 MG, 1 IN 1 D), ORAL
     Route: 048

REACTIONS (1)
  - CONVULSION [None]
